FAERS Safety Report 8772835 (Version 1)
Quarter: 2012Q4

REPORT INFORMATION
  Report Type: 
  Country: NL (occurrence: NL)
  Receive Date: 20120914
  Receipt Date: 20120914
  Transmission Date: 20130627
  Serious: Yes (Hospitalization)
  Sender: FDA-Public Use
  Company Number: NL-GENZYME-THYR-1000757

PATIENT
  Sex: Male

DRUGS (2)
  1. THYROGEN [Suspect]
     Indication: DIAGNOSTIC PROCEDURE
     Dosage: 0.9 mg, qd
     Route: 065
     Dates: start: 20111120, end: 20111121
  2. EUTHYROX [Concomitant]
     Indication: PRODUCT USED FOR UNKNOWN INDICATION
     Dosage: 150 mcg, qd
     Route: 065
     Dates: start: 2005

REACTIONS (3)
  - Neck pain [Recovered/Resolved]
  - Neoplasm swelling [Recovered/Resolved]
  - Headache [Recovered/Resolved]
